FAERS Safety Report 13795622 (Version 1)
Quarter: 2017Q3

REPORT INFORMATION
  Report Type: Not Available
  Country: US (occurrence: US)
  Receive Date: 20170726
  Receipt Date: 20170726
  Transmission Date: 20171127
  Serious: No
  Sender: FDA-Public Use
  Company Number: US-NEUROCRINE BIOSCIENCES INC.-2017NBI00250

PATIENT
  Age: 86 Year
  Sex: Female
  Weight: 78.54 kg

DRUGS (6)
  1. INGREZZA [Suspect]
     Active Substance: VALBENAZINE
     Indication: TARDIVE DYSKINESIA
     Route: 048
     Dates: start: 20170517, end: 20170523
  2. XANAX [Concomitant]
     Active Substance: ALPRAZOLAM
     Indication: TARDIVE DYSKINESIA
     Dates: end: 20170518
  3. INGREZZA [Suspect]
     Active Substance: VALBENAZINE
     Route: 048
     Dates: start: 20170524
  4. XANAX [Concomitant]
     Active Substance: ALPRAZOLAM
     Dates: start: 20170519
  5. PERCOCET [Concomitant]
     Active Substance: ACETAMINOPHEN\OXYCODONE HYDROCHLORIDE
     Indication: FINGER AMPUTATION
  6. BENADRYL [Concomitant]
     Active Substance: DIPHENHYDRAMINE HYDROCHLORIDE
     Indication: TARDIVE DYSKINESIA
     Dosage: TAKES 2

REACTIONS (2)
  - Somnolence [Unknown]
  - Feeling abnormal [Unknown]

NARRATIVE: CASE EVENT DATE: 20170517
